FAERS Safety Report 8903147 (Version 3)
Quarter: 2012Q4

REPORT INFORMATION
  Report Type: 
  Country: JP (occurrence: JP)
  Receive Date: 20121112
  Receipt Date: 20121214
  Transmission Date: 20130627
  Serious: Yes (Death)
  Sender: FDA-Public Use
  Company Number: JP-AMGEN-JPNSP2012071353

PATIENT
  Age: 68 Year
  Sex: Male
  Weight: 63 kg

DRUGS (6)
  1. VECTIBIX [Suspect]
     Indication: LARGE INTESTINE CARCINOMA
     Dosage: 414 mg, q2wk
     Route: 041
     Dates: start: 20120312, end: 20120501
  2. ALOXI [Concomitant]
     Indication: PROPHYLAXIS OF NAUSEA AND VOMITING
     Dosage: 0.75 mg, q2wk
     Route: 041
     Dates: start: 20120312, end: 20120919
  3. ELPLAT [Concomitant]
     Indication: LARGE INTESTINE CARCINOMA
     Dosage: 151 mg, q2wk
     Route: 041
     Dates: start: 20120312, end: 20120919
  4. 5 FU [Concomitant]
     Indication: LARGE INTESTINE CARCINOMA
     Dosage: 4984 mg, q2wk
     Route: 041
     Dates: start: 20120312, end: 20120919
  5. ISOVORIN                           /06682103/ [Concomitant]
     Indication: LARGE INTESTINE CARCINOMA
     Dosage: 350 mg, q2wk
     Route: 041
     Dates: start: 20120312, end: 20120919
  6. DECADRON                           /00016002/ [Concomitant]
     Indication: PROPHYLAXIS OF NAUSEA AND VOMITING
     Dosage: 9.9 mg, q2wk
     Route: 041
     Dates: start: 20120312, end: 20120919

REACTIONS (1)
  - Interstitial lung disease [Fatal]
